FAERS Safety Report 5157357-6 (Version None)
Quarter: 2006Q4

REPORT INFORMATION
  Report Type: 
  Country: None (occurrence: None)
  Receive Date: 20061116
  Receipt Date: 20061107
  Transmission Date: 20070319
  Serious: Yes (Hospitalization)
  Sender: FDA-Public Use
  Company Number: 95-10-0277

PATIENT
  Age: 36 Year
  Sex: Female

DRUGS (3)
  1. CELESTONE SOLUSPAN [Suspect]
     Indication: BACK PAIN
     Dosage: IM
     Route: 030
     Dates: start: 19950814
  2. MARCAINE [Suspect]
     Indication: BACK PAIN
     Dosage: 1 ML; IM
     Route: 030
     Dates: start: 19950814
  3. MUSCLE RELAXANTS [Concomitant]

REACTIONS (17)
  - ANXIETY [None]
  - ARTHRALGIA [None]
  - BACK PAIN [None]
  - BURNING SENSATION [None]
  - DRUG INEFFECTIVE [None]
  - DYSPHAGIA [None]
  - EPSTEIN-BARR VIRUS INFECTION [None]
  - FLUSHING [None]
  - GAIT DISTURBANCE [None]
  - HYPOAESTHESIA [None]
  - ILL-DEFINED DISORDER [None]
  - INFLUENZA LIKE ILLNESS [None]
  - PAIN IN EXTREMITY [None]
  - PARAESTHESIA [None]
  - PARVOVIRUS INFECTION [None]
  - PSYCHOTIC DISORDER [None]
  - THIRST [None]
